FAERS Safety Report 6006176-7 (Version None)
Quarter: 2008Q4

REPORT INFORMATION
  Report Type: 
  Country: None (occurrence: None)
  Receive Date: 20081215
  Receipt Date: 20081209
  Transmission Date: 20090506
  Serious: Yes (Life-Threatening)
  Sender: FDA-Public Use
  Company Number: 2008-188284-NL

PATIENT

DRUGS (1)
  1. PANCURONIUM [Suspect]
     Dosage: 5 ML ONCE

REACTIONS (1)
  - WRONG DRUG ADMINISTERED [None]
